FAERS Safety Report 23508274 (Version 2)
Quarter: 2024Q1

REPORT INFORMATION
  Report Type: Report from Study
  Country: US (occurrence: None)
  Receive Date: 20240209
  Receipt Date: 20240323
  Transmission Date: 20240410
  Serious: Yes (Other)
  Sender: FDA-Public Use
  Company Number: 2024A028929

PATIENT
  Sex: Female

DRUGS (1)
  1. TEZEPELUMAB [Suspect]
     Active Substance: TEZEPELUMAB
     Indication: Asthma
     Route: 058

REACTIONS (4)
  - Pneumonia [Unknown]
  - Gene mutation [Unknown]
  - Sinusitis [Unknown]
  - Bronchiectasis [Unknown]

NARRATIVE: CASE EVENT DATE: 20230701
